FAERS Safety Report 21965547 (Version 1)
Quarter: 2023Q1

REPORT INFORMATION
  Report Type: Spontaneous
  Country: US (occurrence: None)
  Receive Date: 20230208
  Receipt Date: 20230208
  Transmission Date: 20230417
  Serious: Yes (Other)
  Sender: FDA-Public Use
  Company Number: US-ROCHE-3278157

PATIENT
  Sex: Male

DRUGS (3)
  1. VABYSMO [Suspect]
     Active Substance: FARICIMAB-SVOA
     Indication: Product used for unknown indication
     Dosage: 3 INJECTIONS GIVEN OVER THE PAST 4 MONTHS
     Route: 031
  2. LUCENTIS [Suspect]
     Active Substance: RANIBIZUMAB
     Indication: Product used for unknown indication
     Route: 065
  3. AVASTIN [Suspect]
     Active Substance: BEVACIZUMAB
     Indication: Product used for unknown indication
     Route: 065

REACTIONS (6)
  - Vitritis [Not Recovered/Not Resolved]
  - Eye inflammation [Unknown]
  - Intraocular pressure increased [Unknown]
  - Scar [Unknown]
  - Age-related macular degeneration [Unknown]
  - Visual impairment [Unknown]
